FAERS Safety Report 8809342 (Version 1)
Quarter: 2012Q4

REPORT INFORMATION
  Report Type: 
  Country: US (occurrence: US)
  Receive Date: 20120926
  Receipt Date: 20120926
  Transmission Date: 20130627
  Serious: No
  Sender: FDA-Public Use
  Company Number: US-ASTRAZENECA-2012SE71672

PATIENT
  Age: 65 Year
  Sex: Female
  Weight: 65.8 kg

DRUGS (4)
  1. ARIMIDEX [Suspect]
     Indication: BREAST CANCER
     Route: 048
  2. TAMOXIFEN [Suspect]
     Route: 048
     Dates: start: 2008
  3. BABY ASPIRIN [Concomitant]
  4. FIBER SUPPLEMENTS [Concomitant]
     Indication: CONSTIPATION

REACTIONS (3)
  - Postmenopause [Unknown]
  - Change of bowel habit [Unknown]
  - Constipation [Unknown]
